FAERS Safety Report 8326597-7 (Version None)
Quarter: 2012Q2

REPORT INFORMATION
  Report Type: 
  Country: None (occurrence: None)
  Receive Date: 20120501
  Receipt Date: 20090819
  Transmission Date: 20120825
  Serious: No
  Sender: FDA-Public Use
  Company Number: US-TEVA-2009009769

PATIENT
  Sex: Female
  Weight: 62.198 kg

DRUGS (3)
  1. NUVIGIL [Suspect]
     Indication: DEPRESSION
     Dosage: 150 MILLIGRAM;
     Route: 048
     Dates: start: 20090817, end: 20090819
  2. GAVISCON [Concomitant]
     Indication: ABDOMINAL DISCOMFORT
  3. ABILIFY [Concomitant]
     Indication: DEPRESSION
     Route: 048
     Dates: start: 20090101

REACTIONS (2)
  - ABDOMINAL DISCOMFORT [None]
  - INSOMNIA [None]
